FAERS Safety Report 8517898-8 (Version None)
Quarter: 2012Q3

REPORT INFORMATION
  Report Type: 
  Country: None (occurrence: None)
  Receive Date: 20120718
  Receipt Date: 20110719
  Transmission Date: 20120928
  Serious: No
  Sender: FDA-Public Use
  Company Number: US-BRISTOL-MYERS SQUIBB COMPANY-15881105

PATIENT
  Age: 65 Year
  Sex: Male
  Weight: 52 kg

DRUGS (2)
  1. WARFARIN SODIUM [Suspect]
     Dosage: 2.5 MG /2 PER 1DAY,THEN REDUCED TO  2,5MG ON MONDAY AND FRIDAY AND REMAINING DAYS 2.5MG/2 PER 1 DAY
     Route: 048
  2. LEVOTHYROXINE SODIUM [Concomitant]
     Indication: THYROID FUNCTION TEST ABNORMAL

REACTIONS (7)
  - FATIGUE [None]
  - EPISTAXIS [None]
  - THYROID FUNCTION TEST ABNORMAL [None]
  - PYREXIA [None]
  - HAEMATOCHEZIA [None]
  - INTERNATIONAL NORMALISED RATIO DECREASED [None]
  - FALL [None]
